FAERS Safety Report 5013627-3 (Version None)
Quarter: 2006Q2

REPORT INFORMATION
  Report Type: 
  Country: None (occurrence: None)
  Receive Date: 20060530
  Receipt Date: 20060412
  Transmission Date: 20061013
  Serious: Yes (Hospitalization)
  Sender: FDA-Public Use
  Company Number: JP-JPN-A200601253

PATIENT
  Age: 60 Year
  Sex: Female

DRUGS (8)
  1. VALTREX [Suspect]
     Indication: HERPES ZOSTER
     Dosage: 1000MG PER DAY
     Route: 048
     Dates: start: 20060411, end: 20060412
  2. CALTAN [Concomitant]
     Indication: DIALYSIS
     Dosage: 3G PER DAY
     Route: 048
  3. ONEALFA [Concomitant]
     Indication: DIALYSIS
     Dosage: .25MCG PER DAY
     Route: 048
  4. ALLOPURINOL [Concomitant]
     Indication: DIALYSIS
     Dosage: 100MG PER DAY
     Route: 048
  5. DOPS (JAPAN) [Concomitant]
     Indication: DIALYSIS
     Dosage: 200MG PER DAY
     Route: 048
  6. RISUMIC [Concomitant]
     Indication: DIALYSIS
     Dosage: 10MG PER DAY
     Route: 048
  7. AMARYL [Concomitant]
     Indication: DIALYSIS
     Dosage: 1MG PER DAY
     Route: 048
  8. PLETAL [Concomitant]
     Indication: DIALYSIS
     Dosage: 100MG PER DAY
     Route: 048

REACTIONS (6)
  - AFFECT LABILITY [None]
  - DYSARTHRIA [None]
  - NERVOUS SYSTEM DISORDER [None]
  - PSYCHIATRIC SYMPTOM [None]
  - RESTLESSNESS [None]
  - SCREAMING [None]
